FAERS Safety Report 15591051 (Version 1)
Quarter: 2018Q4

REPORT INFORMATION
  Report Type: Spontaneous
  Country: US (occurrence: US)
  Receive Date: 20181107
  Receipt Date: 20181107
  Transmission Date: 20190205
  Serious: No
  Sender: FDA-Public Use
  Company Number: US-PFIZER INC-2018442284

PATIENT
  Age: 57 Year
  Sex: Female
  Weight: 71.21 kg

DRUGS (2)
  1. GABAPENTIN. [Suspect]
     Active Substance: GABAPENTIN
     Dosage: 1400 MG, 3X/DAY IN THE MORNING, AFTERNOON AND NIGHT
  2. GABAPENTIN. [Suspect]
     Active Substance: GABAPENTIN
     Indication: DIABETIC NEUROPATHY
     Dosage: 1200 MG, 3X/DAY, (400MG CAPSULES, THREE CAPSULES THREE TIMES A DAY)
     Route: 048

REACTIONS (6)
  - Drug ineffective for unapproved indication [Unknown]
  - Pain [Unknown]
  - Pain in extremity [Unknown]
  - Muscle spasms [Not Recovered/Not Resolved]
  - Prescribed overdose [Unknown]
  - Dysstasia [Unknown]
